FAERS Safety Report 21372554 (Version 2)
Quarter: 2022Q3

REPORT INFORMATION
  Report Type: Report from Study
  Country: US (occurrence: US)
  Receive Date: 20220924
  Receipt Date: 20220928
  Transmission Date: 20221026
  Serious: Yes (Other)
  Sender: FDA-Public Use
  Company Number: US-NOVARTISPH-NVSC2022US215658

PATIENT
  Sex: Male

DRUGS (1)
  1. PROMACTA [Suspect]
     Active Substance: ELTROMBOPAG OLAMINE
     Indication: Hepatic cirrhosis
     Dosage: UNK
     Route: 048

REACTIONS (4)
  - Hepatic cirrhosis [Unknown]
  - Platelet count decreased [Unknown]
  - Product use in unapproved indication [Unknown]
  - Full blood count increased [Unknown]
